FAERS Safety Report 5016701-0 (Version None)
Quarter: 2006Q2

REPORT INFORMATION
  Report Type: 
  Country: None (occurrence: None)
  Receive Date: 20060526
  Receipt Date: 20060517
  Transmission Date: 20061013
  Serious: Yes (Other)
  Sender: FDA-Public Use
  Company Number: FR200605003964

PATIENT
  Age: 64 Year
  Sex: Female

DRUGS (4)
  1. ZYPREXA [Suspect]
     Indication: BIPOLAR DISORDER
     Dosage: 15 MG, DAILY (1/D), ORAL
     Route: 048
     Dates: start: 20030601, end: 20060517
  2. SERESTA /NET/(OXAZEPAM) [Concomitant]
  3. IMOVANE /UNK/(ZOPICLONE) [Concomitant]
  4. SEROPRAM /SCH/(CITALOPRAM HYDROBROMIDE) [Concomitant]

REACTIONS (3)
  - LEUKOPENIA [None]
  - LYMPHOPENIA [None]
  - NEUTROPENIA [None]
